FAERS Safety Report 18296080 (Version 1)
Quarter: 2020Q3

REPORT INFORMATION
  Report Type: Report from Study
  Country: NL (occurrence: NL)
  Receive Date: 20200922
  Receipt Date: 20200922
  Transmission Date: 20201103
  Serious: Yes (Life-Threatening, Hospitalization, Other)
  Sender: FDA-Public Use
  Company Number: NL-BRISTOL-MYERS SQUIBB COMPANY-BMS-2020-076916

PATIENT
  Age: 65 Year
  Sex: Male
  Weight: 73 kg

DRUGS (4)
  1. IPILIMUMAB [Suspect]
     Active Substance: IPILIMUMAB
     Indication: BLADDER CANCER
     Dosage: 70 MILLIGRAM, Q3WK
     Route: 042
     Dates: start: 20200715
  2. MITOMYCIN C [Concomitant]
     Active Substance: MITOMYCIN
     Indication: BLADDER CANCER
     Dosage: UNK
     Route: 065
  3. NIVOLUMAB [Suspect]
     Active Substance: NIVOLUMAB
     Indication: BLADDER CANCER
     Dosage: 210 MILLIGRAM, Q3WK
     Route: 042
     Dates: start: 20200715
  4. CAPECITABINE. [Concomitant]
     Active Substance: CAPECITABINE
     Indication: BLADDER CANCER
     Dosage: UNK
     Route: 065

REACTIONS (1)
  - Duodenal ulcer [Recovered/Resolved]

NARRATIVE: CASE EVENT DATE: 20200917
